FAERS Safety Report 8243040-7 (Version None)
Quarter: 2012Q1

REPORT INFORMATION
  Report Type: 
  Country: None (occurrence: None)
  Receive Date: 20120329
  Receipt Date: 20120314
  Transmission Date: 20120608
  Serious: Yes (Other)
  Sender: FDA-Public Use
  Company Number: IN-PFIZER INC-2012075583

PATIENT
  Age: 55 Year
  Sex: Male

DRUGS (2)
  1. NIFEDIPINE [Suspect]
     Indication: HYPERTENSION
     Dosage: 20 MG, 1X/DAY
  2. RAMIPRIL [Suspect]
     Indication: HYPERTENSION
     Dosage: 20 MG, 1X/DAY

REACTIONS (4)
  - PROTEINURIA [None]
  - TUBULOINTERSTITIAL NEPHRITIS [None]
  - NEPHROTIC SYNDROME [None]
  - RENAL VASCULITIS [None]
